FAERS Safety Report 10851285 (Version 2)
Quarter: 2015Q1

REPORT INFORMATION
  Report Type: Spontaneous
  Country: US (occurrence: US)
  Receive Date: 20150222
  Receipt Date: 20150222
  Transmission Date: 20150721
  Serious: No
  Sender: FDA-Public Use
  Company Number: US-ALLERGAN-1408521US

PATIENT
  Age: 5 Year
  Sex: Female

DRUGS (3)
  1. DULCOLAX (BISACODYL) [Concomitant]
     Active Substance: BISACODYL
     Dosage: UNK
  2. OXYBUTIN [Concomitant]
     Active Substance: OXYBUTYNIN
     Dosage: UNK
  3. BOTOX [Suspect]
     Active Substance: ONABOTULINUMTOXINA
     Indication: MUSCLE SPASTICITY
     Dosage: 200 UNITS, SINGLE
     Dates: start: 20130603, end: 20130603

REACTIONS (4)
  - Hypersensitivity [Unknown]
  - Off label use [Unknown]
  - Urticaria [Unknown]
  - Wrong technique in drug usage process [Unknown]
